FAERS Safety Report 6355858-6 (Version None)
Quarter: 2009Q3

REPORT INFORMATION
  Report Type: 
  Country: None (occurrence: None)
  Receive Date: 20090910
  Receipt Date: 20090910
  Transmission Date: 20100115
  Serious: Yes (Hospitalization)
  Sender: FDA-Public Use
  Company Number: None

PATIENT
  Sex: Female
  Weight: 24.5 kg

DRUGS (6)
  1. DEXAMETHASONE [Suspect]
     Dosage: 50 MG
  2. MERCAPTOPURINE [Suspect]
     Dosage: 1300 MG
  3. METHOTREXATE [Suspect]
     Dosage: 152 MG
  4. VINCRISTINE SULFATE [Suspect]
     Dosage: 2.7 MG
  5. BACTRIM [Concomitant]
  6. ZOSYN [Concomitant]

REACTIONS (22)
  - ABDOMINAL DISCOMFORT [None]
  - ACUTE HEPATIC FAILURE [None]
  - ANAEMIA [None]
  - ASCITES [None]
  - CHAPPED LIPS [None]
  - CHOLECYSTITIS [None]
  - CHOLECYSTITIS INFECTIVE [None]
  - COAGULOPATHY [None]
  - ENCEPHALOPATHY [None]
  - ERYTHEMA [None]
  - FEBRILE NEUTROPENIA [None]
  - GALLBLADDER DISORDER [None]
  - HEPATOMEGALY [None]
  - HYPERBILIRUBINAEMIA [None]
  - LOBAR PNEUMONIA [None]
  - NO THERAPEUTIC RESPONSE [None]
  - PLEURAL EFFUSION [None]
  - SKIN CHAPPED [None]
  - STOMATITIS [None]
  - THROMBOCYTOPENIA [None]
  - VIRAL INFECTION [None]
  - WAIST CIRCUMFERENCE INCREASED [None]
